FAERS Safety Report 9126186 (Version 1)
Quarter: 2013Q1

REPORT INFORMATION
  Report Type: Spontaneous
  Country: US (occurrence: US)
  Receive Date: 20130117
  Receipt Date: 20130117
  Transmission Date: 20140127
  Serious: Yes (Other)
  Sender: FDA-Public Use
  Company Number: US-ASTELLAS-2012US012722

PATIENT
  Age: 71 Year
  Sex: Male

DRUGS (4)
  1. XTANDI [Suspect]
     Indication: PRODUCT USED FOR UNKNOWN INDICATION
     Dosage: 80 MG, UID/QD
     Route: 065
     Dates: start: 20121208, end: 20121216
  2. XTANDI [Suspect]
     Dosage: UNK
     Route: 065
  3. LASIX                              /00032601/ [Concomitant]
     Indication: PRODUCT USED FOR UNKNOWN INDICATION
     Dosage: UNK
     Route: 065
  4. CASODEX [Concomitant]
     Indication: PRODUCT USED FOR UNKNOWN INDICATION
     Dosage: UNK
     Route: 065

REACTIONS (3)
  - Underdose [Unknown]
  - Gastrointestinal ulcer haemorrhage [Unknown]
  - Oedema peripheral [Unknown]
